FAERS Safety Report 9059360 (Version 1)
Quarter: 2013Q1

REPORT INFORMATION
  Report Type: Spontaneous
  Country: US (occurrence: US)
  Receive Date: 20130211
  Receipt Date: 20130211
  Transmission Date: 20140127
  Serious: Yes (Other)
  Sender: FDA-Public Use
  Company Number: US-PFIZER INC-2012313739

PATIENT
  Age: 71 Year
  Sex: Male
  Weight: 65.76 kg

DRUGS (21)
  1. LYRICA [Suspect]
     Indication: FIBROMYALGIA
     Dosage: 150 MG, 2X/DAY
  2. LEVOXYL [Concomitant]
     Indication: THYROID DISORDER
     Dosage: 50 UG, 1X/DAY
  3. CITALOPRAM [Concomitant]
     Dosage: 10 MG, 1 MID AFTERNOON
  4. ATENOLOL [Concomitant]
     Dosage: 25 MG, 1 MORNING
  5. AMITRIPTYLINE [Concomitant]
     Dosage: 25 MG, 1 BEDTIME
  6. CLONAZEPAM [Concomitant]
     Dosage: 0.5 MG, 1 BEDTIME
  7. RANITIDINE [Concomitant]
     Dosage: 150 MG, 1 MORNING
  8. OMEPRAZOLE [Concomitant]
     Dosage: 40 MG, 1X/DAY
  9. TAMSULOSIN HYDROCHLORIDE [Concomitant]
     Dosage: 0.4 MG, 1 MORNING
  10. LACTULOSE [Concomitant]
     Dosage: 10G/ML AS NEEDED
  11. PROCTOZONE HC [Concomitant]
     Dosage: AT NIGHT
  12. AMITIZA [Concomitant]
     Dosage: 24 UG, AT NIGHT 1 MORNING AND 1 NIGHT
  13. VOLTAREN [Concomitant]
  14. GLYCERIN [Concomitant]
     Dosage: UNK
  15. PREPARATION H SUPPOSITORIES /USA/ [Concomitant]
     Dosage: UNK
  16. CENTRUM SILVER [Concomitant]
     Dosage: UNK
  17. VITAMIN B12 [Concomitant]
     Dosage: 500 UG, 1X/DAY
  18. DOCUSATE SODIUM [Concomitant]
     Dosage: 8 BEDTIME
  19. SIMETICONE [Concomitant]
     Dosage: 125 MG, 2X/DAY
  20. PSYLLIUM [Concomitant]
     Dosage: 1.5 TEASPOON A DAY
  21. METAMUCIL [Concomitant]
     Dosage: 1.5 TEASPOON A DAY

REACTIONS (2)
  - Renal neoplasm [Unknown]
  - Procedural pain [Unknown]
